FAERS Safety Report 7848577 (Version 3)
Quarter: 2012Q4

REPORT INFORMATION
  Report Type: Report from Study
  Country: MY (occurrence: MY)
  Receive Date: 20110309
  Receipt Date: 20121211
  Transmission Date: 20130627
  Serious: Yes (Hospitalization)
  Sender: FDA-Public Use
  Company Number: MY-JNJFOC-20110301172

PATIENT
  Age: 24 Year
  Sex: Male
  Weight: 64 kg

DRUGS (6)
  1. PALIPERIDONE PALMITATE [Suspect]
     Indication: SCHIZOPHRENIA
     Route: 030
     Dates: start: 20110119, end: 20110224
  2. OLANZAPINE [Concomitant]
     Indication: SCHIZOPHRENIA
     Dates: start: 20110119, end: 20110125
  3. OLANZAPINE [Concomitant]
     Indication: SCHIZOPHRENIA
     Dates: start: 20110110, end: 20110223
  4. OLANZAPINE [Concomitant]
     Indication: SCHIZOPHRENIA
     Dates: start: 20101012, end: 20110118
  5. OLANZAPINE [Concomitant]
     Indication: SCHIZOPHRENIA
     Dates: start: 20110126, end: 20110209
  6. LORAZEPAM [Concomitant]
     Indication: POOR QUALITY SLEEP
     Dates: start: 20110118

REACTIONS (1)
  - Intentional self-injury [Recovered/Resolved]
